FAERS Safety Report 5088828-9 (Version None)
Quarter: 2006Q3

REPORT INFORMATION
  Report Type: 
  Country: None (occurrence: None)
  Receive Date: 20060825
  Receipt Date: 20060811
  Transmission Date: 20061208
  Serious: Yes (Life-Threatening)
  Sender: FDA-Public Use
  Company Number: FR-BAYER-200610777BFR

PATIENT
  Age: 13 Year
  Sex: Female
  Weight: 23 kg

DRUGS (9)
  1. TRASYLOL [Suspect]
     Indication: UNEVALUABLE EVENT
     Route: 042
     Dates: start: 20060227, end: 20060227
  2. DEPAKENE [Concomitant]
     Indication: UNEVALUABLE EVENT
     Dosage: TOTAL DAILY DOSE: 1 G  UNIT DOSE: 500 MG
     Route: 048
  3. LAMICTAL [Concomitant]
     Indication: UNEVALUABLE EVENT
     Dosage: TOTAL DAILY DOSE: 40 MG  UNIT DOSE: 20 MG
     Route: 048
  4. SABRIL [Concomitant]
     Indication: UNEVALUABLE EVENT
     Route: 065
  5. URBANYL [Concomitant]
     Indication: UNEVALUABLE EVENT
     Dosage: TOTAL DAILY DOSE: 10 MG  UNIT DOSE: 5 MG
     Route: 065
  6. ZYRTEC [Concomitant]
     Indication: UNEVALUABLE EVENT
     Route: 065
  7. NEXIUM [Concomitant]
     Indication: UNEVALUABLE EVENT
     Dosage: TOTAL DAILY DOSE: 40 MG  UNIT DOSE: 20 MG
     Route: 065
  8. SCOPODERM [Concomitant]
     Indication: UNEVALUABLE EVENT
  9. NEOSYNEPHRINE [Concomitant]
     Indication: UNEVALUABLE EVENT
     Route: 065
     Dates: start: 20060227, end: 20060227

REACTIONS (5)
  - COAGULOPATHY [None]
  - DISSEMINATED INTRAVASCULAR COAGULATION [None]
  - HYPOTENSION [None]
  - PROTHROMBIN TIME SHORTENED [None]
  - THROMBOCYTOPENIA [None]
